FAERS Safety Report 13335958 (Version 2)
Quarter: 2017Q1

REPORT INFORMATION
  Report Type: Spontaneous
  Country: US (occurrence: US)
  Receive Date: 20170314
  Receipt Date: 20170320
  Transmission Date: 20170428
  Serious: Yes (Other)
  Sender: FDA-Public Use
  Company Number: US-DUCHESNAY INC.-1064243

PATIENT
  Age: 34 Year
  Sex: Female

DRUGS (6)
  1. STOOL SOFTENER (DOCUSATE) [Concomitant]
     Active Substance: DOCUSATE
  2. PROBIOTICS [Concomitant]
     Active Substance: PROBIOTICS NOS
  3. PRENATAL + DHA [Concomitant]
  4. DICLEGIS [Suspect]
     Active Substance: DOXYLAMINE SUCCINATE\PYRIDOXINE HYDROCHLORIDE
     Indication: NAUSEA
     Route: 048
  5. ZANTAC [Concomitant]
     Active Substance: RANITIDINE HYDROCHLORIDE
  6. TUMS [Concomitant]
     Active Substance: CALCIUM CARBONATE

REACTIONS (26)
  - Amnesia [Unknown]
  - Insomnia [Recovered/Resolved]
  - Influenza like illness [Unknown]
  - Pain [Unknown]
  - Tremor [Unknown]
  - Decreased appetite [Unknown]
  - Blood pressure increased [Recovered/Resolved]
  - Pruritus [Recovered/Resolved]
  - Presyncope [Recovered/Resolved]
  - Hot flush [Unknown]
  - Pyrexia [Unknown]
  - Somnolence [Unknown]
  - Headache [Recovered/Resolved]
  - Confusional state [Unknown]
  - Chest discomfort [Recovered/Resolved]
  - Hypersensitivity [Unknown]
  - Dry mouth [Unknown]
  - Chest pain [Unknown]
  - Chills [Unknown]
  - Rash [Recovered/Resolved]
  - Rhinorrhoea [Unknown]
  - Sedation [Unknown]
  - Constipation [Unknown]
  - Asthenia [Unknown]
  - Vomiting [Unknown]
  - Withdrawal syndrome [Unknown]

NARRATIVE: CASE EVENT DATE: 2017
